FAERS Safety Report 23492847 (Version 1)
Quarter: 2024Q1

REPORT INFORMATION
  Report Type: Spontaneous
  Country: US (occurrence: US)
  Receive Date: 20240207
  Receipt Date: 20240207
  Transmission Date: 20240410
  Serious: Yes (Other)
  Sender: FDA-Public Use
  Company Number: US-AMGEN-USASP2024023468

PATIENT
  Age: 70 Year
  Sex: Female

DRUGS (1)
  1. TAVNEOS [Suspect]
     Active Substance: AVACOPAN
     Indication: Product used for unknown indication
     Dosage: 30 MILLIGRAM, BID (3 CAPS PO BID)
     Route: 048

REACTIONS (3)
  - Septic shock [Unknown]
  - Pneumonia [Unknown]
  - Illness [Unknown]

NARRATIVE: CASE EVENT DATE: 20240101
